FAERS Safety Report 11693015 (Version 3)
Quarter: 2016Q2

REPORT INFORMATION
  Report Type: Spontaneous
  Country: US (occurrence: US)
  Receive Date: 20151103
  Receipt Date: 20160607
  Transmission Date: 20160815
  Serious: No
  Sender: FDA-Public Use
  Company Number: US-LUNDBECK-DKLU2005604

PATIENT
  Age: 68 Year
  Sex: Male

DRUGS (2)
  1. NORTHERA [Suspect]
     Active Substance: DROXIDOPA
     Dosage: PRN SYSTOLIC BLOOD PRESSURE LESS THAN 100, AM
     Route: 065
  2. NORTHERA [Suspect]
     Active Substance: DROXIDOPA
     Indication: BLOOD PRESSURE SYSTOLIC DECREASED
     Route: 065

REACTIONS (5)
  - Dizziness [Recovered/Resolved]
  - Blood pressure decreased [Unknown]
  - Blood pressure increased [Unknown]
  - Fatigue [Unknown]
  - Hypertension [Recovered/Resolved]

NARRATIVE: CASE EVENT DATE: 20151014
